FAERS Safety Report 5471483-3 (Version None)
Quarter: 2007Q3

REPORT INFORMATION
  Report Type: 
  Country: None (occurrence: None)
  Receive Date: 20070928
  Receipt Date: 20061110
  Transmission Date: 20080115
  Serious: Yes (Other)
  Sender: FDA-Public Use
  Company Number: US-BRISTOL-MYERS SQUIBB COMPANY-13576749

PATIENT
  Sex: Male

DRUGS (5)
  1. DEFINITY [Suspect]
  2. FUROSEMIDE [Suspect]
  3. GLYBURIDE [Suspect]
  4. PROPRANOLOL [Suspect]
  5. SALSALATE [Suspect]

REACTIONS (2)
  - ABDOMINAL PAIN LOWER [None]
  - INFUSION RELATED REACTION [None]
